FAERS Safety Report 19880053 (Version 1)
Quarter: 2021Q3

REPORT INFORMATION
  Report Type: Spontaneous
  Country: US (occurrence: US)
  Receive Date: 20210924
  Receipt Date: 20210924
  Transmission Date: 20211014
  Serious: No
  Sender: FDA-Public Use
  Company Number: US-VERTEX PHARMACEUTICALS-2021-014552

PATIENT
  Age: 53 Year
  Sex: Male

DRUGS (3)
  1. LOSARTAN. [Concomitant]
     Active Substance: LOSARTAN
     Indication: BLOOD PRESSURE MEASUREMENT
  2. THYROXINE [Concomitant]
     Active Substance: LEVOTHYROXINE
     Indication: THYROID DISORDER
  3. TRIKAFTA [Suspect]
     Active Substance: ELEXACAFTOR\IVACAFTOR\TEZACAFTOR
     Indication: CYSTIC FIBROSIS
     Dosage: UNK FREQUENCY
     Route: 048
     Dates: start: 201912

REACTIONS (2)
  - Increased viscosity of upper respiratory secretion [Not Recovered/Not Resolved]
  - Bacterial infection [Not Recovered/Not Resolved]

NARRATIVE: CASE EVENT DATE: 202109
